FAERS Safety Report 19620355 (Version 1)
Quarter: 2021Q3

REPORT INFORMATION
  Report Type: Other
  Country: US (occurrence: US)
  Receive Date: 20210728
  Receipt Date: 20210728
  Transmission Date: 20211014
  Serious: Yes (Other)
  Sender: FDA-Public Use
  Company Number: US-ROCHE-2750444

PATIENT
  Sex: Female
  Weight: 63.11 kg

DRUGS (1)
  1. ALECENSA [Suspect]
     Active Substance: ALECTINIB HYDROCHLORIDE
     Indication: LUNG NEOPLASM MALIGNANT
     Dosage: TAKE 2 CAPSULES (300 MG) BY MOUTH TWO TIMES A DAY
     Route: 048
     Dates: start: 20210111

REACTIONS (1)
  - Dementia [Unknown]
